FAERS Safety Report 16706914 (Version 1)
Quarter: 2019Q3

REPORT INFORMATION
  Report Type: Spontaneous
  Country: US (occurrence: US)
  Receive Date: 20190628
  Receipt Date: 20190628
  Transmission Date: 20191004
  Serious: Yes (Hospitalization)
  Sender: FDA-Public Use
  Company Number: None

PATIENT
  Age: 67 Year
  Sex: Female

DRUGS (3)
  1. TRACLEER [Suspect]
     Active Substance: BOSENTAN
     Indication: CONNECTIVE TISSUE DISORDER
     Dosage: MAY 2017 OR MAY-2019?
     Route: 048
  2. TRACLEER [Suspect]
     Active Substance: BOSENTAN
     Indication: HEART DISEASE CONGENITAL
     Dosage: MAY 2017 OR MAY-2019?
     Route: 048
  3. TRACLEER [Suspect]
     Active Substance: BOSENTAN
     Indication: PULMONARY ARTERIAL HYPERTENSION
     Dosage: MAY 2017 OR MAY-2019?
     Route: 048

REACTIONS (4)
  - Neutropenia [None]
  - Fall [None]
  - Femur fracture [None]
  - Injury [None]

NARRATIVE: CASE EVENT DATE: 20190610
